FAERS Safety Report 25166659 (Version 1)
Quarter: 2025Q2

REPORT INFORMATION
  Report Type: Spontaneous
  Country: CN (occurrence: CN)
  Receive Date: 20250407
  Receipt Date: 20250407
  Transmission Date: 20250717
  Serious: Yes (Other)
  Sender: MYLAN
  Company Number: CN-MYLANLABS-2025M1027927

PATIENT
  Age: 96 Year
  Sex: Female

DRUGS (8)
  1. CELEBREX [Suspect]
     Active Substance: CELECOXIB
     Indication: Lacunar infarction
     Dosage: 200 MILLIGRAM, QD
     Dates: start: 20250322, end: 20250322
  2. CELEBREX [Suspect]
     Active Substance: CELECOXIB
     Dosage: 200 MILLIGRAM, QD
     Route: 048
     Dates: start: 20250322, end: 20250322
  3. CELEBREX [Suspect]
     Active Substance: CELECOXIB
     Dosage: 200 MILLIGRAM, QD
     Route: 048
     Dates: start: 20250322, end: 20250322
  4. CELEBREX [Suspect]
     Active Substance: CELECOXIB
     Dosage: 200 MILLIGRAM, QD
     Dates: start: 20250322, end: 20250322
  5. XARELTO [Suspect]
     Active Substance: RIVAROXABAN
     Indication: Lacunar infarction
     Dosage: 10 MILLIGRAM, QD
     Dates: start: 20250321, end: 20250322
  6. XARELTO [Suspect]
     Active Substance: RIVAROXABAN
     Dosage: 10 MILLIGRAM, QD
     Route: 048
     Dates: start: 20250321, end: 20250322
  7. XARELTO [Suspect]
     Active Substance: RIVAROXABAN
     Dosage: 10 MILLIGRAM, QD
     Route: 048
     Dates: start: 20250321, end: 20250322
  8. XARELTO [Suspect]
     Active Substance: RIVAROXABAN
     Dosage: 10 MILLIGRAM, QD
     Dates: start: 20250321, end: 20250322

REACTIONS (2)
  - Lower gastrointestinal haemorrhage [Unknown]
  - Off label use [Unknown]

NARRATIVE: CASE EVENT DATE: 20250322
